FAERS Safety Report 18486513 (Version 3)
Quarter: 2021Q1

REPORT INFORMATION
  Report Type: Report from Study
  Country: JP (occurrence: JP)
  Receive Date: 20201110
  Receipt Date: 20210310
  Transmission Date: 20210419
  Serious: Yes (Life-Threatening)
  Sender: FDA-Public Use
  Company Number: JP-PFIZER INC-2020341828

PATIENT
  Age: 85 Year
  Sex: Male
  Weight: 49.4 kg

DRUGS (18)
  1. PREDNISOLONE. [Concomitant]
     Active Substance: PREDNISOLONE
     Dosage: 3 MG, DAILY
     Route: 048
     Dates: start: 20160225, end: 20160323
  2. PARIET [Concomitant]
     Active Substance: RABEPRAZOLE SODIUM
     Route: 048
  3. RIMATIL [Concomitant]
     Active Substance: BUCILLAMINE
     Indication: RHEUMATOID ARTHRITIS
     Dosage: UNK
     Dates: start: 20170223, end: 20170503
  4. XELJANZ [Suspect]
     Active Substance: TOFACITINIB CITRATE
     Indication: RHEUMATOID ARTHRITIS
     Dosage: 5 MG, 1X/DAY
     Dates: start: 20151210, end: 20151223
  5. XELJANZ [Suspect]
     Active Substance: TOFACITINIB CITRATE
     Dosage: 5 MG, 2X/DAY
     Dates: start: 20151224, end: 20160803
  6. PREDNISOLONE. [Concomitant]
     Active Substance: PREDNISOLONE
     Dosage: 2 MG, DAILY
     Route: 048
     Dates: start: 20151015, end: 20151111
  7. CARERAM [Concomitant]
     Active Substance: IGURATIMOD
     Indication: RHEUMATOID ARTHRITIS
     Dosage: UNK
     Dates: end: 20170425
  8. PREDNISOLONE. [Concomitant]
     Active Substance: PREDNISOLONE
     Dosage: 5 MG, DAILY
     Route: 048
  9. AZULFIDINE [Concomitant]
     Active Substance: SULFASALAZINE
     Indication: RHEUMATOID ARTHRITIS
     Dosage: UNK
     Dates: end: 20170503
  10. PREDONINE [Concomitant]
     Active Substance: PREDNISOLONE
     Dosage: 5 MG, DAILY
     Route: 048
     Dates: start: 20151112, end: 20151202
  11. PREDONINE [Concomitant]
     Active Substance: PREDNISOLONE
     Dosage: 5 MG, DAILY
     Route: 048
     Dates: start: 20160324, end: 20170503
  12. FERROUS CITRATE SODIUM [Concomitant]
     Active Substance: SODIUM FERROUS CITRATE
     Route: 048
  13. REBAMIPIDE [Concomitant]
     Active Substance: REBAMIPIDE
     Route: 048
  14. PYDOXAL [Concomitant]
     Active Substance: PYRIDOXAL
     Dosage: UNK
     Route: 048
     Dates: start: 20151210
  15. PREDNISOLONE. [Concomitant]
     Active Substance: PREDNISOLONE
     Dosage: 4 MG, DAILY
     Route: 048
     Dates: start: 20160128, end: 20160224
  16. PREDONINE [Concomitant]
     Active Substance: PREDNISOLONE
     Dosage: 7.5 MG, DAILY
     Route: 048
     Dates: start: 20151203, end: 20151209
  17. PREDONINE [Concomitant]
     Active Substance: PREDNISOLONE
     Dosage: 5 MG, DAILY
     Route: 048
     Dates: start: 20151210, end: 20160127
  18. TRAMCET [Concomitant]
     Active Substance: ACETAMINOPHEN\TRAMADOL
     Route: 048

REACTIONS (1)
  - Lung neoplasm malignant [Not Recovered/Not Resolved]

NARRATIVE: CASE EVENT DATE: 20170425
